FAERS Safety Report 8500633-7 (Version None)
Quarter: 2012Q3

REPORT INFORMATION
  Report Type: 
  Country: None (occurrence: None)
  Receive Date: 20120710
  Receipt Date: 20120627
  Transmission Date: 20120928
  Serious: No
  Sender: FDA-Public Use
  Company Number: US-ASTRAZENECA-2012SE43360

PATIENT
  Age: 65 Year
  Sex: Female
  Weight: 54.4 kg

DRUGS (2)
  1. ARIMIDEX [Suspect]
     Route: 048
     Dates: start: 20110901
  2. ARIMIDEX [Suspect]
     Indication: BREAST CANCER
     Route: 048
     Dates: start: 20090701

REACTIONS (2)
  - PRURITUS [None]
  - URTICARIA [None]
